FAERS Safety Report 5777512-1 (Version None)
Quarter: 2008Q2

REPORT INFORMATION
  Report Type: 
  Country: None (occurrence: None)
  Receive Date: 20080618
  Receipt Date: 20080604
  Transmission Date: 20081010
  Serious: No
  Sender: FDA-Public Use
  Company Number: US-ELI_LILLY_AND_COMPANY-US200806001605

PATIENT
  Age: 38 Year
  Sex: Female

DRUGS (3)
  1. CYMBALTA [Suspect]
     Indication: MAJOR DEPRESSION
     Dosage: 60 MG, UNK
     Dates: start: 20070101, end: 20080501
  2. ZOLOFT [Concomitant]
     Dates: end: 20070101
  3. BENZODIAZEPINE DERIVATIVES [Concomitant]

REACTIONS (1)
  - LIVER FUNCTION TEST ABNORMAL [None]
